FAERS Safety Report 10398889 (Version 1)
Quarter: 2014Q3

REPORT INFORMATION
  Report Type: Spontaneous
  Country: US (occurrence: None)
  Receive Date: 20140819
  Receipt Date: 20140819
  Transmission Date: 20150326
  Serious: Yes (Hospitalization)
  Sender: FDA-Public Use
  Company Number: 2480357

PATIENT
  Age: 56 Year
  Sex: Male

DRUGS (1)
  1. (GEMCITABINE HYDROCHLORIDE) [Suspect]
     Active Substance: GEMCITABINE HYDROCHLORIDE
     Indication: ADENOCARCINOMA PANCREAS
     Dosage: 1000 MG/M2 MILLIGRAM(S) / SQ. METER.

REACTIONS (3)
  - Mitral valve incompetence [None]
  - Cardiac failure congestive [None]
  - Cardiomyopathy [None]
